FAERS Safety Report 25177083 (Version 1)
Quarter: 2025Q2

REPORT INFORMATION
  Report Type: Spontaneous
  Country: US (occurrence: US)
  Receive Date: 20250409
  Receipt Date: 20250409
  Transmission Date: 20250716
  Serious: No
  Sender: IPSEN
  Company Number: US-IPSEN Group, Research and Development-2025-07547

PATIENT
  Sex: Male

DRUGS (1)
  1. SOMATULINE DEPOT [Suspect]
     Active Substance: LANREOTIDE ACETATE
     Indication: Neuroendocrine tumour
     Route: 058

REACTIONS (2)
  - Pyrexia [Unknown]
  - Sinus congestion [Unknown]
